FAERS Safety Report 6740305-2 (Version None)
Quarter: 2010Q2

REPORT INFORMATION
  Report Type: 
  Country: None (occurrence: None)
  Receive Date: 20100525
  Receipt Date: 20100520
  Transmission Date: 20101027
  Serious: Yes (Other)
  Sender: FDA-Public Use
  Company Number: US-B.I. PHARMACEUTICALS,INC./RIDGEFIELD-2010-BP-05758BP

PATIENT
  Age: 50 Year
  Sex: Male

DRUGS (1)
  1. AGGRENOX [Suspect]

REACTIONS (1)
  - TRANSIENT ISCHAEMIC ATTACK [None]
